FAERS Safety Report 23045362 (Version 1)
Quarter: 2023Q4

REPORT INFORMATION
  Report Type: Spontaneous
  Country: US (occurrence: US)
  Receive Date: 20231009
  Receipt Date: 20231009
  Transmission Date: 20240109
  Serious: Yes (Other)
  Sender: FDA-Public Use
  Company Number: US-AMGEN-USASP2023175981

PATIENT

DRUGS (1)
  1. PROLIA [Suspect]
     Active Substance: DENOSUMAB
     Indication: Osteoporosis
     Dosage: ONE INJECTION, TWICE A YEAR
     Route: 065

REACTIONS (8)
  - Cerebrovascular accident [Unknown]
  - Fracture [Unknown]
  - Pain [Unknown]
  - Alopecia [Unknown]
  - Dry skin [Unknown]
  - Dry eye [Unknown]
  - Skin wrinkling [Unknown]
  - Vertigo [Unknown]
